FAERS Safety Report 23597559 (Version 1)
Quarter: 2024Q1

REPORT INFORMATION
  Report Type: Spontaneous
  Country: CN (occurrence: CN)
  Receive Date: 20240305
  Receipt Date: 20240305
  Transmission Date: 20240410
  Serious: Yes (Hospitalization)
  Sender: FDA-Public Use
  Company Number: CN-PFIZER INC-PV202400027691

PATIENT
  Age: 81 Year
  Sex: Female
  Weight: 50 kg

DRUGS (1)
  1. NIRMATRELVIR\RITONAVIR [Suspect]
     Active Substance: NIRMATRELVIR\RITONAVIR
     Indication: Pneumonia viral
     Dosage: 100 MG, 1X/DAY
     Route: 048
     Dates: start: 20240218, end: 20240218

REACTIONS (4)
  - Somnolence [Recovering/Resolving]
  - Confusional state [Recovering/Resolving]
  - Depressed level of consciousness [Recovering/Resolving]
  - Off label use [Unknown]

NARRATIVE: CASE EVENT DATE: 20240218
